FAERS Safety Report 5179076-2 (Version None)
Quarter: 2006Q4

REPORT INFORMATION
  Report Type: 
  Country: None (occurrence: None)
  Receive Date: 20061219
  Receipt Date: 20061208
  Transmission Date: 20070319
  Serious: Yes (Hospitalization, Other)
  Sender: FDA-Public Use
  Company Number: DE-JNJFOC-20061104904

PATIENT
  Age: 66 Year
  Sex: Female

DRUGS (11)
  1. RISPERDAL [Suspect]
     Route: 048
  2. RISPERDAL [Suspect]
     Route: 048
  3. RISPERDAL [Suspect]
     Indication: SCHIZOAFFECTIVE DISORDER
     Route: 048
  4. MIRTAZAPINE [Concomitant]
  5. VENLAFAXINE HCL [Concomitant]
  6. ASPIRIN [Concomitant]
  7. ANTI HYPERTONIC AGENT [Concomitant]
  8. LIPID DECREASING AGENT [Concomitant]
  9. AKINETON [Concomitant]
     Route: 048
  10. ATOSIL [Concomitant]
     Route: 048
  11. AGGRENOX [Concomitant]
     Route: 048

REACTIONS (2)
  - CEREBROVASCULAR ACCIDENT [None]
  - THROMBOCYTHAEMIA [None]
